FAERS Safety Report 4485290-1 (Version None)
Quarter: 2004Q4

REPORT INFORMATION
  Report Type: 
  Country: None (occurrence: None)
  Receive Date: 20041022
  Receipt Date: 20041022
  Transmission Date: 20050328
  Serious: Yes (Hospitalization)
  Sender: FDA-Public Use
  Company Number: None

PATIENT
  Age: 44 Year
  Sex: Female

DRUGS (2)
  1. INTERFERON [Suspect]
     Indication: HEPATITIS C
  2. FLUOXETINE [Suspect]
     Indication: DEPRESSION

REACTIONS (1)
  - DIARRHOEA [None]
